FAERS Safety Report 8812448 (Version 2)
Quarter: 2012Q4

REPORT INFORMATION
  Report Type: 
  Country: US (occurrence: US)
  Receive Date: 20120927
  Receipt Date: 20121129
  Transmission Date: 20130627
  Serious: Yes (Other)
  Sender: FDA-Public Use
  Company Number: US-ROCHE-1127673

PATIENT
  Sex: Female

DRUGS (10)
  1. AVASTIN [Suspect]
     Indication: BREAST CANCER FEMALE
     Route: 042
     Dates: start: 20050817, end: 20070306
  2. AVASTIN [Suspect]
     Indication: HAEMATOLOGICAL MALIGNANCY
  3. XELODA [Suspect]
     Indication: BREAST CANCER FEMALE
     Route: 065
     Dates: start: 200405
  4. XELODA [Suspect]
     Indication: HAEMATOLOGICAL MALIGNANCY
     Route: 065
     Dates: start: 200505
  5. NAVELBINE [Concomitant]
     Route: 065
     Dates: start: 200405
  6. NAVELBINE [Concomitant]
     Route: 065
     Dates: start: 200505
  7. LUPRON [Concomitant]
  8. FEMARA [Concomitant]
  9. PAMIDRONATE [Concomitant]
  10. ABRAXANE [Concomitant]
     Route: 065
     Dates: start: 200508

REACTIONS (1)
  - Metastases to bone [Unknown]
